FAERS Safety Report 4846285-9 (Version None)
Quarter: 2005Q4

REPORT INFORMATION
  Report Type: 
  Country: None (occurrence: None)
  Receive Date: 20051130
  Receipt Date: 20051122
  Transmission Date: 20060501
  Serious: Yes (Death, Hospitalization, Other)
  Sender: FDA-Public Use
  Company Number: 163-20785-05100161

PATIENT
  Age: 78 Year
  Sex: Male

DRUGS (6)
  1. THALOMID [Suspect]
     Indication: MULTIPLE MYELOMA
     Dosage: 200 MG, QHS, ORAL
     Route: 048
     Dates: start: 20050923, end: 20051005
  2. MEGACE ES (MEGESTROL ACETATE) [Concomitant]
  3. MYCELEX [Concomitant]
  4. DIFLUCAN (FLUCONAZOLE) [Concomitant]
  5. GLUCOTROL [Concomitant]
  6. DECADRON [Concomitant]

REACTIONS (28)
  - AMMONIA INCREASED [None]
  - BLOOD CULTURE POSITIVE [None]
  - BLOOD GLUCOSE INCREASED [None]
  - BLOOD MAGNESIUM INCREASED [None]
  - BLOOD PRESSURE DIASTOLIC DECREASED [None]
  - BLOOD SODIUM DECREASED [None]
  - BUNDLE BRANCH BLOCK LEFT [None]
  - CARBON DIOXIDE DECREASED [None]
  - CARDIO-RESPIRATORY ARREST [None]
  - ELECTROCARDIOGRAM PR SHORTENED [None]
  - ELECTROCARDIOGRAM QT CORRECTED INTERVAL PROLONGED [None]
  - HYPERKALAEMIA [None]
  - HYPOXIA [None]
  - INTERNATIONAL NORMALISED RATIO INCREASED [None]
  - KLEBSIELLA INFECTION [None]
  - KUSSMAUL RESPIRATION [None]
  - LACTIC ACIDOSIS [None]
  - LYMPHOCYTE COUNT DECREASED [None]
  - MENTAL STATUS CHANGES [None]
  - PROTHROMBIN TIME PROLONGED [None]
  - PULSE ABSENT [None]
  - RENAL FAILURE ACUTE [None]
  - SINUS TACHYCARDIA [None]
  - TACHYPNOEA [None]
  - THROMBOCYTOPENIA [None]
  - UNRESPONSIVE TO VERBAL STIMULI [None]
  - VENTRICULAR EXTRASYSTOLES [None]
  - VENTRICULAR FIBRILLATION [None]
